FAERS Safety Report 21741276 (Version 3)
Quarter: 2023Q2

REPORT INFORMATION
  Report Type: Spontaneous
  Country: US (occurrence: US)
  Receive Date: 20221216
  Receipt Date: 20230626
  Transmission Date: 20230721
  Serious: No
  Sender: FDA-Public Use
  Company Number: US-PFIZER INC-202201369145

PATIENT
  Age: 68 Year
  Sex: Male
  Weight: 90.72 kg

DRUGS (6)
  1. BRAFTOVI [Suspect]
     Active Substance: ENCORAFENIB
     Indication: Neoplasm
     Dosage: 6 DF, 1X/DAY (IN THE MORNING)
  2. BRAFTOVI [Suspect]
     Active Substance: ENCORAFENIB
     Indication: Malignant melanoma
  3. MEKTOVI [Suspect]
     Active Substance: BINIMETINIB
     Indication: Neoplasm
     Dosage: 3 DF, 2X/DAY (3 PILLS IN THE MORNING AND 3 PILLS AT NIGHT
  4. MEKTOVI [Suspect]
     Active Substance: BINIMETINIB
     Indication: Malignant melanoma
  5. IBUPROFEN [Concomitant]
     Active Substance: IBUPROFEN
     Dosage: UNK (RARELY TAKES 400MG AND NORMALLY TAKES 200MG)
  6. OXYCODONE [Concomitant]
     Active Substance: OXYCODONE
     Dosage: UNK (ONLY TOOK THIS LIKE 3 TIMES)

REACTIONS (2)
  - Neoplasm progression [Unknown]
  - Hepatic enzyme abnormal [Recovering/Resolving]

NARRATIVE: CASE EVENT DATE: 20220101
